FAERS Safety Report 19893852 (Version 1)
Quarter: 2021Q3

REPORT INFORMATION
  Report Type: Spontaneous
  Country: US (occurrence: US)
  Receive Date: 20210928
  Receipt Date: 20210928
  Transmission Date: 20211014
  Serious: No
  Sender: FDA-Public Use
  Company Number: US-MYLANLABS-2021M1056043

PATIENT
  Sex: Female
  Weight: 77 kg

DRUGS (2)
  1. XULANE [Suspect]
     Active Substance: ETHINYL ESTRADIOL\NORELGESTROMIN
     Indication: CONTRACEPTION
     Dosage: 150/35 MCG/DAY,QD,AS DIRECTED?  WEEK 4 IS PATCH?FREE WEEK,
     Route: 062
  2. XULANE [Suspect]
     Active Substance: ETHINYL ESTRADIOL\NORELGESTROMIN
     Indication: POLYCYSTIC OVARIES

REACTIONS (2)
  - Menstruation irregular [Not Recovered/Not Resolved]
  - Product adhesion issue [Not Recovered/Not Resolved]
